FAERS Safety Report 5056330-6 (Version None)
Quarter: 2006Q3

REPORT INFORMATION
  Report Type: 
  Country: None (occurrence: None)
  Receive Date: 20060717
  Receipt Date: 20060704
  Transmission Date: 20061208
  Serious: Yes (Hospitalization, Other)
  Sender: FDA-Public Use
  Company Number: 2006065076

PATIENT
  Age: 71 Year
  Sex: Female
  Weight: 63 kg

DRUGS (11)
  1. LYRICA [Suspect]
     Indication: SCIATICA
     Dosage: 150 MG (75 MG, 2 IN 1 D), ORAL
     Route: 048
     Dates: start: 20060426, end: 20060427
  2. WARFARIN SODIUM [Concomitant]
  3. ADALGUR (GLAFENINE, MEPROBAMATE, THIOCOLCHICOSIDE) [Concomitant]
  4. ISMO [Concomitant]
  5. ASPIRIN [Concomitant]
  6. LASIX [Concomitant]
  7. BISOPROLOL FUMARATE [Concomitant]
  8. FLINDIX (ISOSORBIDE DINITRATE) [Concomitant]
  9. CRESTOR [Concomitant]
  10. ALPRAZOLAM [Concomitant]
  11. ACETAMINOPHEN [Concomitant]

REACTIONS (2)
  - BRADYCARDIA [None]
  - SYNCOPE [None]
